FAERS Safety Report 6036230-5 (Version None)
Quarter: 2009Q1

REPORT INFORMATION
  Report Type: 
  Country: None (occurrence: None)
  Receive Date: 20090113
  Receipt Date: 20090108
  Transmission Date: 20090719
  Serious: No
  Sender: FDA-Public Use
  Company Number: US-B.I. PHARMACEUTICALS,INC./RIDGEFIELD-2008-BP-17884BP

PATIENT
  Age: 67 Year
  Sex: Female

DRUGS (4)
  1. MIRAPEX [Suspect]
     Indication: RESTLESS LEGS SYNDROME
     Dosage: .125MG
  2. BLOOD PRESSURE MED [Concomitant]
  3. NORCO [Concomitant]
  4. XANAX [Concomitant]

REACTIONS (1)
  - TREMOR [None]
